FAERS Safety Report 9231994 (Version 1)
Quarter: 2013Q2

REPORT INFORMATION
  Report Type: Spontaneous
  Country: US (occurrence: US)
  Receive Date: 20130415
  Receipt Date: 20130415
  Transmission Date: 20140414
  Serious: Yes (Other)
  Sender: FDA-Public Use
  Company Number: US-PFIZER INC-2013116183

PATIENT
  Age: 52 Year
  Sex: Female

DRUGS (5)
  1. XELJANZ [Suspect]
     Indication: RHEUMATOID ARTHRITIS
     Dosage: 5 MG, 2X/DAY
     Route: 048
  2. ZOLOFT [Concomitant]
     Dosage: 100 MG TABLET
  3. ASPIRIN (E.C.) [Concomitant]
     Dosage: 81 MG TABLET
  4. CLONAZEPAM [Concomitant]
     Dosage: 0.25 MG ODT
  5. ADVIL [Concomitant]
     Dosage: 100 MG TABLET

REACTIONS (2)
  - Drug dose omission [Unknown]
  - Rheumatoid arthritis [Unknown]
